FAERS Safety Report 10479523 (Version 1)
Quarter: 2014Q3

REPORT INFORMATION
  Report Type: Spontaneous
  Country: US (occurrence: None)
  Receive Date: 20140926
  Receipt Date: 20140926
  Transmission Date: 20150326
  Serious: Yes (Other)
  Sender: FDA-Public Use
  Company Number: None

PATIENT
  Age: 67 Year
  Sex: Female
  Weight: 77.57 kg

DRUGS (16)
  1. COLACE [Concomitant]
     Active Substance: DOCUSATE SODIUM
  2. GAMUNEX [Suspect]
     Active Substance: HUMAN IMMUNOGLOBULIN G
     Indication: IMMUNOGLOBULINS DECREASED
     Route: 042
     Dates: start: 20140905, end: 20140912
  3. VITAMIN D [Concomitant]
     Active Substance: CHOLECALCIFEROL
  4. NORCO [Concomitant]
     Active Substance: ACETAMINOPHEN\HYDROCODONE BITARTRATE
  5. CALCIUM [Concomitant]
     Active Substance: CALCIUM
  6. CRESTOR [Concomitant]
     Active Substance: ROSUVASTATIN CALCIUM
  7. KLOR-CHON [Concomitant]
  8. MOBIC [Concomitant]
     Active Substance: MELOXICAM
  9. PROTONIX [Concomitant]
     Active Substance: PANTOPRAZOLE SODIUM
  10. LEVOTHYROXINE [Concomitant]
     Active Substance: LEVOTHYROXINE
  11. TRAZODONE [Concomitant]
     Active Substance: TRAZODONE HYDROCHLORIDE
  12. TRIAMTERENE AND HYDROCHLOROTHIAZIDE [Concomitant]
     Active Substance: HYDROCHLOROTHIAZIDE\TRIAMTERENE
  13. ATELVIA [Concomitant]
     Active Substance: RISEDRONATE SODIUM
  14. FEXOFENADINE [Concomitant]
     Active Substance: FEXOFENADINE\FEXOFENADINE HYDROCHLORIDE
  15. MELOTONIN [Concomitant]
  16. GAMUNEX [Suspect]
     Active Substance: HUMAN IMMUNOGLOBULIN G
     Indication: IMMUNOGLOBULINS DECREASED
     Route: 042
     Dates: start: 20140905, end: 20140912

REACTIONS (5)
  - Pain [None]
  - Oedema [None]
  - Abdominal pain [None]
  - Chromaturia [None]
  - Nausea [None]

NARRATIVE: CASE EVENT DATE: 20140918
